FAERS Safety Report 19112361 (Version 2)
Quarter: 2021Q2

REPORT INFORMATION
  Report Type: Spontaneous
  Country: SA (occurrence: SA)
  Receive Date: 20210409
  Receipt Date: 20210604
  Transmission Date: 20210717
  Serious: Yes (Death, Hospitalization, Other)
  Sender: FDA-Public Use
  Company Number: SA-ALXN-A202104331

PATIENT
  Age: 9 Month
  Sex: Female
  Weight: 9 kg

DRUGS (1)
  1. SOLIRIS [Suspect]
     Active Substance: ECULIZUMAB
     Indication: ATYPICAL HAEMOLYTIC URAEMIC SYNDROME
     Dosage: 300 MG , Q3W
     Route: 042
     Dates: start: 20210308

REACTIONS (1)
  - Viral myocarditis [Fatal]
